FAERS Safety Report 6165413-9 (Version None)
Quarter: 2009Q2

REPORT INFORMATION
  Report Type: 
  Country: None (occurrence: None)
  Receive Date: 20090423
  Receipt Date: 20090415
  Transmission Date: 20091009
  Serious: Yes (Other)
  Sender: FDA-Public Use
  Company Number: CN-WATSON-2009-02554

PATIENT
  Age: 11 Year
  Sex: Male
  Weight: 55 kg

DRUGS (4)
  1. ISONIAZID [Suspect]
     Indication: TUBERCULOSIS
     Dosage: 300 MG, DAILY
     Route: 048
  2. RIFAMPIN [Suspect]
     Indication: TUBERCULOSIS
     Dosage: 600 MG, DAILY
     Route: 048
  3. PYRAZINAMIDE [Suspect]
     Indication: TUBERCULOSIS
     Dosage: 2 G, DAILY
     Route: 048
  4. ETHAMBUTOL HCL [Suspect]
     Indication: TUBERCULOSIS
     Dosage: 800 MG, DAILY
     Route: 048

REACTIONS (2)
  - INFLAMMATION [None]
  - PARADOXICAL DRUG REACTION [None]
